FAERS Safety Report 24914680 (Version 2)
Quarter: 2025Q1

REPORT INFORMATION
  Report Type: Report from Study
  Country: BR (occurrence: BR)
  Receive Date: 20250203
  Receipt Date: 20250228
  Transmission Date: 20250408
  Serious: No
  Sender: NOVO NORDISK
  Company Number: BR-NOVOPROD-1362589

PATIENT
  Age: 51 Year
  Sex: Female
  Weight: 97 kg

DRUGS (4)
  1. DULOXETINE [Concomitant]
     Active Substance: DULOXETINE
     Indication: Anxiety
     Dates: start: 2022
  2. QUETIAPINE [Concomitant]
     Active Substance: QUETIAPINE
     Indication: Anxiety
     Dates: start: 2022
  3. TIBOLONE [Concomitant]
     Active Substance: TIBOLONE
     Indication: Menopause
  4. OZEMPIC [Suspect]
     Active Substance: SEMAGLUTIDE
     Indication: Weight control
     Dosage: 1 MG, QW
     Dates: start: 20250122

REACTIONS (4)
  - Vomiting [Not Recovered/Not Resolved]
  - Headache [Not Recovered/Not Resolved]
  - Off label use [Not Recovered/Not Resolved]
  - Product use issue [Unknown]

NARRATIVE: CASE EVENT DATE: 20250122
